FAERS Safety Report 7858571-9 (Version None)
Quarter: 2011Q4

REPORT INFORMATION
  Report Type: 
  Country: None (occurrence: None)
  Receive Date: 20111027
  Receipt Date: 20111006
  Transmission Date: 20120403
  Serious: No
  Sender: FDA-Public Use
  Company Number: CA-JNJFOC-20110908674

PATIENT
  Sex: Male
  Weight: 82.6 kg

DRUGS (9)
  1. METHOTREXATE [Concomitant]
  2. RABEPRAZOLE SODIUM [Concomitant]
  3. NAPROXEN [Concomitant]
  4. ZOPICLONE [Concomitant]
  5. PREDNISONE [Concomitant]
  6. REMICADE [Suspect]
     Indication: RHEUMATOID ARTHRITIS
     Dosage: 41ST INFUSION ON 19-SEP-2011
     Route: 042
     Dates: start: 20070201
  7. HORMONE SHOTS [Concomitant]
  8. OXYCET [Concomitant]
  9. EXTRA STRENGTH TYLENOL [Concomitant]

REACTIONS (1)
  - BURSITIS [None]
